FAERS Safety Report 18131704 (Version 1)
Quarter: 2020Q3

REPORT INFORMATION
  Report Type: Spontaneous
  Country: TH (occurrence: TH)
  Receive Date: 20200810
  Receipt Date: 20200810
  Transmission Date: 20201103
  Serious: Yes (Other)
  Sender: FDA-Public Use
  Company Number: TH-ANIPHARMA-2020-TH-000017

PATIENT
  Age: 57 Year
  Sex: Male

DRUGS (5)
  1. SERTRALINE [Suspect]
     Active Substance: SERTRALINE HYDROCHLORIDE
     Indication: MAJOR DEPRESSION
     Dosage: 25 MG DAILY
  2. LORAZEPAM (NON?SPECIFIC) [Suspect]
     Active Substance: LORAZEPAM
     Indication: MAJOR DEPRESSION
     Dosage: 1 MG BEFORE BEDTIME
  3. BACLOFEN. [Suspect]
     Active Substance: BACLOFEN
     Indication: MUSCLE SPASTICITY
     Dosage: 30 MG DAILY
  4. SODIUM CHLORIDE ENEMA [Concomitant]
     Dosage: 20 TO 40 ML 3 TIMES PER WEEK
     Route: 054
  5. OXYBUTYNIN. [Suspect]
     Active Substance: OXYBUTYNIN CHLORIDE
     Indication: MUSCLE SPASTICITY
     Dosage: 15 MG DAILY

REACTIONS (2)
  - Large intestinal obstruction [Unknown]
  - Volvulus [Unknown]
